FAERS Safety Report 23799568 (Version 1)
Quarter: 2024Q2

REPORT INFORMATION
  Report Type: Spontaneous
  Country: FR (occurrence: FR)
  Receive Date: 20240430
  Receipt Date: 20240430
  Transmission Date: 20240716
  Serious: Yes (Hospitalization)
  Sender: FDA-Public Use
  Company Number: None

PATIENT
  Age: 66 Year
  Sex: Male
  Weight: 80 kg

DRUGS (1)
  1. CHLORHEXIDINE [Suspect]
     Active Substance: CHLORHEXIDINE\CHLORHEXIDINE GLUCONATE
     Indication: Infection prophylaxis
     Dosage: 3G
     Route: 040
     Dates: start: 20240309, end: 20240309

REACTIONS (5)
  - Product confusion [Recovered/Resolved]
  - Dysgeusia [Recovered/Resolved]
  - Feeling hot [Recovered/Resolved]
  - Incorrect route of product administration [Recovered/Resolved]
  - Paraesthesia oral [Recovered/Resolved]

NARRATIVE: CASE EVENT DATE: 20240309
